FAERS Safety Report 11043460 (Version 1)
Quarter: 2015Q2

REPORT INFORMATION
  Report Type: Report from Study
  Country: US (occurrence: US)
  Receive Date: 20150417
  Receipt Date: 20150417
  Transmission Date: 20150821
  Serious: Yes (Hospitalization)
  Sender: FDA-Public Use
  Company Number: US-BIOGENIDEC-2015BI046425

PATIENT
  Age: 58 Year
  Sex: Female

DRUGS (6)
  1. TECFIDERA [Suspect]
     Active Substance: DIMETHYL FUMARATE
     Indication: MULTIPLE SCLEROSIS
     Route: 048
     Dates: start: 2013
  2. AMPYRA [Concomitant]
     Active Substance: DALFAMPRIDINE
  3. MAXALT [Concomitant]
     Active Substance: RIZATRIPTAN BENZOATE
  4. DETROL [Concomitant]
     Active Substance: TOLTERODINE TARTRATE
  5. MULTIVITAMIN [Concomitant]
     Active Substance: VITAMINS
  6. COQ10 [Concomitant]
     Active Substance: UBIDECARENONE

REACTIONS (1)
  - Viral infection [Not Recovered/Not Resolved]

NARRATIVE: CASE EVENT DATE: 201504
